FAERS Safety Report 20176445 (Version 1)
Quarter: 2021Q4

REPORT INFORMATION
  Report Type: Spontaneous
  Country: US (occurrence: None)
  Receive Date: 20211210
  Receipt Date: 20211210
  Transmission Date: 20220304
  Serious: Yes (Hospitalization)
  Sender: FDA-Public Use
  Company Number: None

PATIENT
  Age: 61 Year
  Sex: Female
  Weight: 65.25 kg

DRUGS (14)
  1. CAPECITABINE [Suspect]
     Active Substance: CAPECITABINE
     Indication: Breast cancer
     Dosage: OTHER FREQUENCY : BID FOR 14/21 DAYS;?
     Route: 048
     Dates: start: 20211028
  2. AMITRIPTYLINE [Concomitant]
     Active Substance: AMITRIPTYLINE
  3. CLARITIN [Concomitant]
     Active Substance: LORATADINE
  4. CYMBALTA [Concomitant]
     Active Substance: DULOXETINE HYDROCHLORIDE
  5. ELIQUIS [Concomitant]
     Active Substance: APIXABAN
  6. HYDROXYZINE [Concomitant]
     Active Substance: HYDROXYZINE HYDROCHLORIDE
  7. METOPROLOL TARTRATE [Concomitant]
     Active Substance: METOPROLOL TARTRATE
  8. ONDANSETRON [Concomitant]
     Active Substance: ONDANSETRON
  9. PREDNISONE [Concomitant]
     Active Substance: PREDNISONE
  10. Saline 0.65% [Concomitant]
  11. TIZANIDINE [Concomitant]
     Active Substance: TIZANIDINE
  12. Triamcinolone 0.025% [Concomitant]
  13. VENTOLIN HFA [Concomitant]
     Active Substance: ALBUTEROL SULFATE
  14. Vitamin B12 500mcg [Concomitant]

REACTIONS (2)
  - Hypertension [None]
  - Sepsis [None]

NARRATIVE: CASE EVENT DATE: 20211209
